FAERS Safety Report 5623467-X (Version None)
Quarter: 2008Q1

REPORT INFORMATION
  Report Type: 
  Country: None (occurrence: None)
  Receive Date: 20080212
  Receipt Date: 20080129
  Transmission Date: 20080703
  Serious: Yes (Hospitalization, Other)
  Sender: FDA-Public Use
  Company Number: US-ELI_LILLY_AND_COMPANY-US200801006281

PATIENT
  Age: 17 Year
  Sex: Male
  Weight: 68.934 kg

DRUGS (4)
  1. STRATTERA [Suspect]
     Indication: ATTENTION DEFICIT/HYPERACTIVITY DISORDER
     Dosage: 40 MG, DAILY (1/D)
     Dates: end: 20070101
  2. STRATTERA [Suspect]
     Dosage: 60 MG, DAILY (1/D)
     Dates: start: 20070101, end: 20080101
  3. STRATTERA [Suspect]
     Dosage: 40 MG, DAILY (1/D)
     Dates: start: 20080101
  4. LEXAPRO [Concomitant]
     Indication: DEPRESSION
     Dosage: 30 MG, DAILY (1/D)
     Dates: start: 20080114, end: 20080101

REACTIONS (19)
  - ACCIDENTAL OVERDOSE [None]
  - AGITATION [None]
  - AMNESIA [None]
  - APHASIA [None]
  - DISORIENTATION [None]
  - DISTURBANCE IN ATTENTION [None]
  - DRUG INEFFECTIVE [None]
  - DYSURIA [None]
  - GAIT DISTURBANCE [None]
  - HALLUCINATION, VISUAL [None]
  - HEART RATE INCREASED [None]
  - HYPERHIDROSIS [None]
  - HYPERTENSION [None]
  - MUSCULAR WEAKNESS [None]
  - PALLOR [None]
  - PARANOIA [None]
  - TOXICOLOGIC TEST ABNORMAL [None]
  - TREMOR [None]
  - WEIGHT INCREASED [None]
